FAERS Safety Report 25988278 (Version 1)
Quarter: 2025Q4

REPORT INFORMATION
  Report Type: Spontaneous
  Country: US (occurrence: US)
  Receive Date: 20251103
  Receipt Date: 20251103
  Transmission Date: 20260118
  Serious: No
  Sender: MERCK SHARP & DOHME LLC
  Company Number: US-009507513-2342037

PATIENT
  Age: 60 Year
  Sex: Female

DRUGS (3)
  1. SIVEXTRO [Suspect]
     Active Substance: TEDIZOLID PHOSPHATE
     Indication: Eye infection
     Route: 048
     Dates: start: 20251001, end: 20251001
  2. AZITHROMYCIN [Concomitant]
     Active Substance: AZITHROMYCIN
  3. CLARITHROMYCIN [Concomitant]
     Active Substance: CLARITHROMYCIN

REACTIONS (3)
  - Off label use [Unknown]
  - No adverse event [Unknown]
  - Insurance issue [Unknown]

NARRATIVE: CASE EVENT DATE: 20251001
